FAERS Safety Report 18188348 (Version 1)
Quarter: 2020Q3

REPORT INFORMATION
  Report Type: Spontaneous
  Country: US (occurrence: US)
  Receive Date: 20200824
  Receipt Date: 20200824
  Transmission Date: 20201103
  Serious: Yes (Hospitalization, Disabling, Other)
  Sender: FDA-Public Use
  Company Number: US-MYLANLABS-2020M1071836

PATIENT
  Sex: Male

DRUGS (1)
  1. EPINEPHRINE. [Suspect]
     Active Substance: EPINEPHRINE
     Indication: HYPERSENSITIVITY
     Dosage: UNK
     Dates: start: 20180901, end: 20180901

REACTIONS (17)
  - Asthenia [Recovered/Resolved]
  - Expired product administered [Recovered/Resolved]
  - Loss of consciousness [Unknown]
  - Device failure [Unknown]
  - Weight decreased [Recovered/Resolved]
  - Oesophageal perforation [Recovered/Resolved]
  - Facial discomfort [Unknown]
  - Sleep disorder [Recovered/Resolved]
  - Syncope [Recovered/Resolved]
  - Vomiting [Unknown]
  - Dysphagia [Recovered/Resolved]
  - Haematemesis [Recovered/Resolved]
  - Pain [Recovered/Resolved]
  - Aggression [Unknown]
  - Bedridden [Recovered/Resolved]
  - Thirst [Recovered/Resolved]
  - Drug ineffective [Recovered/Resolved]

NARRATIVE: CASE EVENT DATE: 201811
